FAERS Safety Report 10560939 (Version 1)
Quarter: 2014Q4

REPORT INFORMATION
  Report Type: Spontaneous
  Country: FR (occurrence: FR)
  Receive Date: 20141103
  Receipt Date: 20141103
  Transmission Date: 20150529
  Serious: Yes (Other)
  Sender: FDA-Public Use
  Company Number: FR-PFIZER INC-2014296122

PATIENT
  Age: 53 Year
  Sex: Male

DRUGS (6)
  1. MIOREL [Concomitant]
     Active Substance: ORPHENADRINE
     Dosage: 4 G, 2X/DAY
  2. TAZOCILLINE [Suspect]
     Active Substance: PIPERACILLIN SODIUM\TAZOBACTAM SODIUM
     Indication: ANTIBIOTIC THERAPY
     Dosage: 3 DF, 3X/DAY
     Route: 041
     Dates: start: 20140803, end: 20140824
  3. IMOVANE [Concomitant]
     Active Substance: ZOPICLONE
     Dosage: 7.5 G, AS NEEDED AT BEDTIME IF BROMAZEPAM WAS NOT EFFECTIVE
  4. ELUDRIL [Concomitant]
     Active Substance: CHLORHEXIDINE GLUCONATE\CHLOROBUTANOL
     Dosage: MOUTHWASH, 4X/DAY
  5. PARACETAMOL [Concomitant]
     Active Substance: ACETAMINOPHEN
     Dosage: 1 G, 4X/DAY
  6. LEXOMIL [Concomitant]
     Active Substance: BROMAZEPAM
     Dosage: 0.5 DF, AS NEEDED IN THE EVENING

REACTIONS (8)
  - Injection site infection [Recovered/Resolved]
  - General physical health deterioration [Recovered/Resolved]
  - Chest pain [Recovered/Resolved]
  - Injection related reaction [Recovered/Resolved]
  - Agranulocytosis [Recovered/Resolved]
  - Myalgia [Recovered/Resolved]
  - Gastrointestinal disorder [Recovered/Resolved]
  - Pyrexia [Recovered/Resolved]

NARRATIVE: CASE EVENT DATE: 201408
